FAERS Safety Report 21670345 (Version 1)
Quarter: 2022Q4

REPORT INFORMATION
  Report Type: Spontaneous
  Country: US (occurrence: US)
  Receive Date: 20221201
  Receipt Date: 20221201
  Transmission Date: 20230113
  Serious: Yes (Hospitalization)
  Sender: FDA-Public Use
  Company Number: US-TEVA-2022-US-2831106

PATIENT
  Sex: Female

DRUGS (1)
  1. METOPROLOL SUCCINATE [Suspect]
     Active Substance: METOPROLOL SUCCINATE
     Indication: Product used for unknown indication
     Dosage: 50 MILLIGRAM
     Dates: start: 202202

REACTIONS (10)
  - Vertigo [Unknown]
  - Hypertension [Unknown]
  - Chest pain [Unknown]
  - Palpitations [Unknown]
  - Orthostatic hypotension [Unknown]
  - Dizziness [Unknown]
  - Chest discomfort [Unknown]
  - Headache [Unknown]
  - Illness [Unknown]
  - Product quality issue [Unknown]

NARRATIVE: CASE EVENT DATE: 20220101
